FAERS Safety Report 7089817-5 (Version None)
Quarter: 2010Q4

REPORT INFORMATION
  Report Type: 
  Country: None (occurrence: None)
  Receive Date: 20101108
  Receipt Date: 20101028
  Transmission Date: 20110411
  Serious: Yes (Other)
  Sender: FDA-Public Use
  Company Number: DE-GENENTECH-298670

PATIENT
  Age: 79 Year
  Sex: Male

DRUGS (2)
  1. LUCENTIS [Suspect]
     Indication: PRODUCT USED FOR UNKNOWN INDICATION
     Dosage: UNK
     Route: 031
     Dates: start: 20070601
  2. LUCENTIS [Suspect]
     Dosage: UNK
     Route: 031
     Dates: start: 20091201

REACTIONS (1)
  - VISUAL ACUITY REDUCED [None]
